FAERS Safety Report 13409613 (Version 1)
Quarter: 2017Q2

REPORT INFORMATION
  Report Type: Spontaneous
  Country: US (occurrence: US)
  Receive Date: 20170406
  Receipt Date: 20170406
  Transmission Date: 20170830
  Serious: No
  Sender: FDA-Public Use
  Company Number: US-JNJFOC-20161115503

PATIENT
  Age: 8 Year
  Sex: Male
  Weight: 71.22 kg

DRUGS (2)
  1. RISPERDAL [Suspect]
     Active Substance: RISPERIDONE
     Indication: BIPOLAR DISORDER
     Route: 048
     Dates: start: 200708, end: 200803
  2. RISPERDAL [Suspect]
     Active Substance: RISPERIDONE
     Indication: ATTENTION DEFICIT/HYPERACTIVITY DISORDER
     Route: 048
     Dates: start: 200708, end: 200803

REACTIONS (4)
  - Weight increased [Unknown]
  - Emotional disorder [Unknown]
  - Breast enlargement [Unknown]
  - Tremor [Unknown]

NARRATIVE: CASE EVENT DATE: 200803
